FAERS Safety Report 11196081 (Version 1)
Quarter: 2015Q2

REPORT INFORMATION
  Report Type: Spontaneous
  Country: US (occurrence: None)
  Receive Date: 20150616
  Receipt Date: 20150616
  Transmission Date: 20150821
  Serious: No
  Sender: FDA-Public Use
  Company Number: None

PATIENT
  Age: 62 Year
  Sex: Male

DRUGS (8)
  1. PRILOSEC [Concomitant]
     Active Substance: OMEPRAZOLE MAGNESIUM
  2. RIBAVIRIN 200MG ZYDUS [Suspect]
     Active Substance: RIBAVIRIN
     Indication: HEPATITIS
     Dosage: 600MG QAM + QPM PO
     Route: 048
     Dates: start: 20150423
  3. PROPRANOLOL [Concomitant]
     Active Substance: PROPRANOLOL\PROPRANOLOL HYDROCHLORIDE
  4. LISINOPRIL. [Concomitant]
     Active Substance: LISINOPRIL
  5. LACTULOSE. [Concomitant]
     Active Substance: LACTULOSE
  6. TRAMADOL [Concomitant]
     Active Substance: TRAMADOL
  7. SOVALDI [Suspect]
     Active Substance: SOFOSBUVIR
     Indication: HEPATITIS
     Route: 048
     Dates: start: 20150423
  8. XIFAXAN [Concomitant]
     Active Substance: RIFAXIMIN

REACTIONS (5)
  - Photophobia [None]
  - Decreased appetite [None]
  - Insomnia [None]
  - Weight decreased [None]
  - Dizziness [None]

NARRATIVE: CASE EVENT DATE: 20150423
